FAERS Safety Report 5239129-7 (Version None)
Quarter: 2007Q1

REPORT INFORMATION
  Report Type: 
  Country: None (occurrence: None)
  Receive Date: 20070212
  Receipt Date: 20070125
  Transmission Date: 20070707
  Serious: Yes (Hospitalization)
  Sender: FDA-Public Use
  Company Number: 2007EU000239

PATIENT
  Age: 54 Year
  Sex: Female

DRUGS (2)
  1. PROGRAF [Suspect]
     Dosage: UNKNOWN/D, ORAL
     Route: 048
     Dates: start: 20061221, end: 20070102
  2. VALACYCLOVIR HCL [Concomitant]

REACTIONS (1)
  - CEREBELLAR SYNDROME [None]
